FAERS Safety Report 8923753 (Version 2)
Quarter: 2013Q1

REPORT INFORMATION
  Report Type: Spontaneous
  Country: US (occurrence: US)
  Receive Date: 20121126
  Receipt Date: 20130103
  Transmission Date: 20140127
  Serious: Yes (Other)
  Sender: FDA-Public Use
  Company Number: US-NOVOPROD-364431

PATIENT
  Age: 9 Year
  Sex: Male
  Weight: 33.56 kg

DRUGS (1)
  1. NORDITROPIN FLEXPRO 6.7 MG/ML [Suspect]
     Indication: DWARFISM
     Dosage: 6 DAYS PER WEEK
     Route: 058
     Dates: start: 20101214, end: 20121114

REACTIONS (1)
  - Recurrent cancer [Not Recovered/Not Resolved]
